FAERS Safety Report 7089289-0 (Version None)
Quarter: 2010Q4

REPORT INFORMATION
  Report Type: 
  Country: None (occurrence: None)
  Receive Date: 20101029
  Receipt Date: 20101013
  Transmission Date: 20110411
  Serious: Yes (Other)
  Sender: FDA-Public Use
  Company Number: 2010100033

PATIENT
  Age: 54 Year
  Sex: Female
  Weight: 45.7 kg

DRUGS (2)
  1. D-PENICILLAMINE [Suspect]
     Indication: HEPATO-LENTICULAR DEGENERATION
     Dosage: (600 MG, DAILY)
  2. PHOSPHATE PYRIDOXOL (PHOSPHATE PYRIDOXOL) [Concomitant]

REACTIONS (13)
  - ALANINE AMINOTRANSFERASE INCREASED [None]
  - ANAEMIA [None]
  - ASPARTATE AMINOTRANSFERASE INCREASED [None]
  - ASTERIXIS [None]
  - BLOOD BILIRUBIN INCREASED [None]
  - DYSARTHRIA [None]
  - DYSKINESIA [None]
  - GAIT DISTURBANCE [None]
  - HEPATIC CIRRHOSIS [None]
  - HEPATIC NEOPLASM MALIGNANT [None]
  - HYPOACUSIS [None]
  - PROTEIN INDUCED BY VITAMIN K ABSENCE OR ANTAGONIST II INCREASED [None]
  - SPLENOMEGALY [None]
